FAERS Safety Report 14364735 (Version 1)
Quarter: 2018Q1

REPORT INFORMATION
  Report Type: Spontaneous
  Country: US (occurrence: US)
  Receive Date: 20180106
  Receipt Date: 20180106
  Transmission Date: 20180509
  Serious: Yes (Other)
  Sender: FDA-Public Use
  Company Number: None

PATIENT
  Age: 36 Year
  Sex: Female
  Weight: 101.25 kg

DRUGS (2)
  1. HYDROCORTISONE 2.5% CREAM [Suspect]
     Active Substance: HYDROCORTISONE
     Indication: DERMATITIS
  2. VITAMIN D [Concomitant]
     Active Substance: CHOLECALCIFEROL

REACTIONS (6)
  - Lipoatrophy [None]
  - Inflammation [None]
  - Skin disorder [None]
  - Chondropathy [None]
  - Skin atrophy [None]
  - Burning sensation [None]
